FAERS Safety Report 8708972 (Version 2)
Quarter: 2012Q4

REPORT INFORMATION
  Report Type: 
  Country: US (occurrence: US)
  Receive Date: 20120806
  Receipt Date: 20120906
  Transmission Date: 20130627
  Serious: Yes (Other)
  Sender: FDA-Public Use
  Company Number: US-PFIZER INC-2012186286

PATIENT
  Age: 25 Year
  Sex: Female
  Weight: 54.42 kg

DRUGS (7)
  1. LYRICA [Suspect]
     Indication: RHEUMATOID ARTHRITIS
     Dosage: 75 mg, UNK
     Route: 048
     Dates: start: 2012, end: 201206
  2. LYRICA [Suspect]
     Indication: FIBROMYALGIA
     Dosage: 150 mg, 2x/day
     Route: 048
     Dates: start: 201206, end: 201207
  3. LYRICA [Suspect]
     Indication: DEPRESSION
  4. PHENERGAN [Concomitant]
     Indication: NAUSEA
     Dosage: UNK
  5. NEXIUM [Concomitant]
     Indication: DYSPEPSIA
     Dosage: UNK
  6. VICODIN [Concomitant]
     Indication: RHEUMATOID ARTHRITIS
     Dosage: 7.5 mg, UNK
     Route: 048
     Dates: start: 201206, end: 201206
  7. VICODIN [Concomitant]
     Indication: FIBROMYALGIA

REACTIONS (10)
  - Mental impairment [Not Recovered/Not Resolved]
  - Activities of daily living impaired [Not Recovered/Not Resolved]
  - Drug ineffective [Unknown]
  - Mood swings [Not Recovered/Not Resolved]
  - Depressed mood [Not Recovered/Not Resolved]
  - Depression [Not Recovered/Not Resolved]
  - Agitation [Not Recovered/Not Resolved]
  - Aggression [Not Recovered/Not Resolved]
  - Stress [Not Recovered/Not Resolved]
  - Emotional disorder [Not Recovered/Not Resolved]
